FAERS Safety Report 9776839 (Version 1)
Quarter: 2013Q4

REPORT INFORMATION
  Report Type: Report from Study
  Country: US (occurrence: US)
  Receive Date: 20131221
  Receipt Date: 20131221
  Transmission Date: 20140711
  Serious: Yes (Other)
  Sender: FDA-Public Use
  Company Number: US-ROCHE-1321156

PATIENT
  Sex: Female

DRUGS (7)
  1. DIAZEPAM [Suspect]
     Indication: PRODUCT USED FOR UNKNOWN INDICATION
     Route: 065
  2. AMLODIPINE BESYLATE [Concomitant]
     Route: 065
  3. B-COMPLEX VITAMINS [Concomitant]
     Dosage: 1 TABLET QD
     Route: 065
  4. LOSARTAN [Concomitant]
     Dosage: 1 TABLET QD
     Route: 065
  5. ACETAMINOPHEN [Concomitant]
     Dosage: 1 QD
     Route: 065
  6. FEXOFENADINE [Concomitant]
     Dosage: 1 TABLET QD
     Route: 065
  7. LORAZEPAM [Concomitant]
     Dosage: 1/2 TAB PRN
     Route: 065

REACTIONS (7)
  - Breast cancer [Unknown]
  - Skin cancer [Unknown]
  - Drug hypersensitivity [Unknown]
  - Type 2 diabetes mellitus [Unknown]
  - Hypertension [Unknown]
  - Glaucoma [Unknown]
  - Atrial fibrillation [Unknown]
